FAERS Safety Report 12843061 (Version 1)
Quarter: 2016Q4

REPORT INFORMATION
  Report Type: Spontaneous
  Country: FR (occurrence: FR)
  Receive Date: 20161013
  Receipt Date: 20161013
  Transmission Date: 20170207
  Serious: Yes (Other)
  Sender: FDA-Public Use
  Company Number: FR-RECORDATI RARE DISEASES-FR-R13005-16-00271

PATIENT
  Age: 1 Year
  Sex: Female

DRUGS (2)
  1. COSMEGEN [Suspect]
     Active Substance: DACTINOMYCIN
     Indication: NEPHROBLASTOMA
     Route: 042
     Dates: start: 20160811, end: 20160825
  2. VINCRISTINE TEVA [Suspect]
     Active Substance: VINCRISTINE
     Indication: NEPHROBLASTOMA
     Route: 042
     Dates: start: 20160811, end: 20160901

REACTIONS (1)
  - Rash vesicular [Recovered/Resolved]

NARRATIVE: CASE EVENT DATE: 201608
